FAERS Safety Report 23205638 (Version 3)
Quarter: 2023Q4

REPORT INFORMATION
  Report Type: Spontaneous
  Country: US (occurrence: US)
  Receive Date: 20231120
  Receipt Date: 20231222
  Transmission Date: 20240110
  Serious: No
  Sender: FDA-Public Use
  Company Number: US-PFIZER INC-202101129896

PATIENT
  Age: 91 Year
  Sex: Female
  Weight: 45.805 kg

DRUGS (8)
  1. RETACRIT [Suspect]
     Active Substance: EPOETIN ALFA-EPBX
     Indication: Anaemia
     Dosage: 40,000 MONTHLY
     Dates: start: 20210106
  2. RETACRIT [Suspect]
     Active Substance: EPOETIN ALFA-EPBX
     Indication: Chronic kidney disease-mineral and bone disorder
     Dosage: 40,000 MONTHLY
     Dates: start: 20210203
  3. RETACRIT [Suspect]
     Active Substance: EPOETIN ALFA-EPBX
     Dosage: 40,000 MONTHLY
     Dates: start: 20210331
  4. RETACRIT [Suspect]
     Active Substance: EPOETIN ALFA-EPBX
     Dosage: 40,000 MONTHLY
     Dates: start: 202104
  5. RETACRIT [Suspect]
     Active Substance: EPOETIN ALFA-EPBX
     Dosage: 40,000 MONTHLY
     Dates: start: 202109
  6. RETACRIT [Suspect]
     Active Substance: EPOETIN ALFA-EPBX
     Dosage: DAY 1 AND DAY 15Q 21DAYS
  7. RETACRIT [Suspect]
     Active Substance: EPOETIN ALFA-EPBX
     Dosage: 30000 IU (EVERY 2 WEEKS)
     Dates: start: 202305
  8. RETACRIT [Suspect]
     Active Substance: EPOETIN ALFA-EPBX
     Dosage: 40000 IU (EVERY) Q 2 W)
     Route: 058
     Dates: start: 202307

REACTIONS (1)
  - Blood creatinine increased [Unknown]

NARRATIVE: CASE EVENT DATE: 20220104
